FAERS Safety Report 4310539-5 (Version None)
Quarter: 2004Q1

REPORT INFORMATION
  Report Type: 
  Country: None (occurrence: None)
  Receive Date: 20040303
  Receipt Date: 20040301
  Transmission Date: 20041129
  Serious: Yes (Hospitalization)
  Sender: FDA-Public Use
  Company Number: US-GLAXOSMITHKLINE-A0500699A

PATIENT
  Age: 78 Year
  Sex: Female

DRUGS (10)
  1. REQUIP [Suspect]
     Indication: PARKINSON'S DISEASE
     Dosage: 1MG THREE TIMES PER DAY
     Route: 048
  2. COMTAN [Suspect]
     Indication: PARKINSON'S DISEASE
     Route: 048
  3. SINEMET [Concomitant]
  4. SYNTHROID [Concomitant]
  5. PRINIVIL [Concomitant]
  6. ACID REFLUX MED. [Concomitant]
  7. LASIX [Concomitant]
  8. PROZAC [Concomitant]
  9. PREMARIN [Concomitant]
  10. MULTIPLE MEDICATIONS [Concomitant]

REACTIONS (7)
  - DIARRHOEA [None]
  - DRUG EFFECT INCREASED [None]
  - FATIGUE [None]
  - SLEEP ATTACKS [None]
  - SLEEP WALKING [None]
  - SOMNOLENCE [None]
  - SUDDEN ONSET OF SLEEP [None]
